FAERS Safety Report 18975798 (Version 4)
Quarter: 2022Q3

REPORT INFORMATION
  Report Type: Report from Study
  Country: CA (occurrence: CA)
  Receive Date: 20210305
  Receipt Date: 20220623
  Transmission Date: 20221027
  Serious: Yes (Other)
  Sender: FDA-Public Use
  Company Number: NVSC2020CA274959

PATIENT
  Sex: Female

DRUGS (3)
  1. SANDOSTATIN LAR DEPOT [Suspect]
     Active Substance: OCTREOTIDE ACETATE
     Indication: Neuroendocrine tumour
     Dosage: 30 MG, Q4W
     Route: 030
     Dates: start: 20170815
  2. SANDOSTATIN LAR DEPOT [Suspect]
     Active Substance: OCTREOTIDE ACETATE
  3. SANDOSTATIN LAR DEPOT [Suspect]
     Active Substance: OCTREOTIDE ACETATE

REACTIONS (5)
  - Blood magnesium decreased [Unknown]
  - Blood pressure systolic increased [Unknown]
  - Pulmonary mass [Unknown]
  - Myalgia [Recovering/Resolving]
  - Wrist fracture [Unknown]

NARRATIVE: CASE EVENT DATE: 20200101
